FAERS Safety Report 17352391 (Version 1)
Quarter: 2020Q1

REPORT INFORMATION
  Report Type: Report from Study
  Country: None (occurrence: US)
  Receive Date: 20200130
  Receipt Date: 20200130
  Transmission Date: 20200409
  Serious: Yes (Hospitalization)
  Sender: FDA-Public Use
  Company Number: US-ABBVIE-20K-163-3256041-00

PATIENT
  Age: 18 Year
  Sex: Female

DRUGS (1)
  1. HUMIRA [Suspect]
     Active Substance: ADALIMUMAB
     Indication: CROHN^S DISEASE
     Dosage: CITRATE FREE
     Route: 058

REACTIONS (5)
  - Lung perforation [Not Recovered/Not Resolved]
  - Emotional distress [Not Recovered/Not Resolved]
  - Pneumonia [Not Recovered/Not Resolved]
  - Fear [Unknown]
  - Dyspnoea [Unknown]

NARRATIVE: CASE EVENT DATE: 201909
